FAERS Safety Report 16782992 (Version 2)
Quarter: 2019Q4

REPORT INFORMATION
  Report Type: Spontaneous
  Country: US (occurrence: US)
  Receive Date: 20190906
  Receipt Date: 20191025
  Transmission Date: 20200122
  Serious: Yes (Hospitalization)
  Sender: FDA-Public Use
  Company Number: US-VIFOR (INTERNATIONAL) INC.-VIT-2019-08673

PATIENT
  Age: 89 Year
  Sex: Male

DRUGS (1)
  1. VELTASSA [Suspect]
     Active Substance: PATIROMER
     Indication: BLOOD POTASSIUM INCREASED

REACTIONS (6)
  - Off label use [Unknown]
  - Product physical issue [Unknown]
  - Cerebrovascular accident [Unknown]
  - Renal disorder [Unknown]
  - Hospitalisation [Unknown]
  - Constipation [Unknown]

NARRATIVE: CASE EVENT DATE: 20190809
